APPROVED DRUG PRODUCT: YASMIN
Active Ingredient: DROSPIRENONE; ETHINYL ESTRADIOL
Strength: 3MG;0.03MG
Dosage Form/Route: TABLET;ORAL-28
Application: N021098 | Product #001 | TE Code: AB
Applicant: BAYER HEALTHCARE PHARMACEUTICALS INC
Approved: May 11, 2001 | RLD: Yes | RS: Yes | Type: RX